FAERS Safety Report 5009366-5 (Version None)
Quarter: 2006Q2

REPORT INFORMATION
  Report Type: 
  Country: None (occurrence: None)
  Receive Date: 20060522
  Receipt Date: 20060511
  Transmission Date: 20061013
  Serious: Yes (Death)
  Sender: FDA-Public Use
  Company Number: 2006-DE-02446GD

PATIENT
  Sex: Male

DRUGS (3)
  1. METHOTREXATE [Suspect]
     Indication: MYCOSIS FUNGOIDES
     Dosage: IM
     Route: 030
  2. PREDNISONE TAB [Suspect]
     Indication: MYCOSIS FUNGOIDES
  3. CHLORAMBUCIL (CHLORAMBUCIL) [Suspect]
     Indication: MYCOSIS FUNGOIDES

REACTIONS (11)
  - CD4/CD8 RATIO INCREASED [None]
  - DERMATITIS EXFOLIATIVE [None]
  - DISSEMINATED INTRAVASCULAR COAGULATION [None]
  - DRUG INEFFECTIVE [None]
  - LEUKOCYTOSIS [None]
  - LYMPHOCYTOSIS [None]
  - MALIGNANT NEOPLASM PROGRESSION [None]
  - MULTI-ORGAN FAILURE [None]
  - MYCOSIS FUNGOIDES STAGE IV [None]
  - RENAL FAILURE ACUTE [None]
  - RESPIRATORY FAILURE [None]
